FAERS Safety Report 14283177 (Version 1)
Quarter: 2017Q4

REPORT INFORMATION
  Report Type: Spontaneous
  Country: US (occurrence: US)
  Receive Date: 20171213
  Receipt Date: 20171213
  Transmission Date: 20180321
  Serious: No
  Sender: FDA-Public Use
  Company Number: US-ACTELION-A-NJ2017-164126

PATIENT
  Age: 51 Year
  Sex: Female
  Weight: 120.18 kg

DRUGS (1)
  1. VELETRI [Suspect]
     Active Substance: EPOPROSTENOL
     Indication: PULMONARY ARTERIAL HYPERTENSION
     Dosage: 15 NG/KG, PER MIN
     Route: 042

REACTIONS (5)
  - Anal incontinence [Unknown]
  - Diarrhoea [Unknown]
  - Quality of life decreased [Unknown]
  - Condition aggravated [Unknown]
  - Faecal volume increased [Unknown]
